FAERS Safety Report 9546872 (Version 2)
Quarter: 2013Q3

REPORT INFORMATION
  Report Type: Spontaneous
  Country: US (occurrence: None)
  Receive Date: 20130606
  Receipt Date: 20130906
  Transmission Date: 20140515
  Serious: Yes (Other)
  Sender: FDA-Public Use
  Company Number: 163-POMAL-13043131

PATIENT
  Age: 75 Year
  Sex: Male
  Weight: 78.02 kg

DRUGS (7)
  1. POMALYST [Suspect]
     Indication: PLASMA CELL MYELOMA
     Dosage: 4 MG, 21 IN 28 D, PO
     Route: 048
     Dates: start: 20130326
  2. DEXAMETHASONE [Concomitant]
  3. PANTOPRAZOLE [Concomitant]
  4. FUROSEMIDE [Concomitant]
  5. LOVASTATIN [Concomitant]
  6. SPIRONOLACTONE [Concomitant]
  7. KLOR-CON (POTASSIUM CHLORIDE) [Concomitant]

REACTIONS (4)
  - Oesophageal disorder [None]
  - Gastrooesophageal reflux disease [None]
  - Drug dose omission [None]
  - No adverse event [None]
